FAERS Safety Report 16269146 (Version 1)
Quarter: 2019Q2

REPORT INFORMATION
  Report Type: Spontaneous
  Country: FR (occurrence: FR)
  Receive Date: 20190503
  Receipt Date: 20190503
  Transmission Date: 20190711
  Serious: Yes (Other)
  Sender: FDA-Public Use
  Company Number: FR-ELI_LILLY_AND_COMPANY-FR201904012238

PATIENT
  Age: 44 Year
  Sex: Male
  Weight: 68 kg

DRUGS (1)
  1. ZYPADHERA [Suspect]
     Active Substance: OLANZAPINE PAMOATE
     Indication: AFFECTIVE DISORDER
     Dosage: 1 DOSAGE FORM, MONTHLY (1/M)
     Route: 030
     Dates: start: 20190404

REACTIONS (4)
  - Somnolence [Unknown]
  - Hallucination [Unknown]
  - Delirium [Unknown]
  - Confusional state [Unknown]

NARRATIVE: CASE EVENT DATE: 20190404
